FAERS Safety Report 8300285-5 (Version None)
Quarter: 2012Q2

REPORT INFORMATION
  Report Type: 
  Country: None (occurrence: None)
  Receive Date: 20120420
  Receipt Date: 20120417
  Transmission Date: 20120825
  Serious: Yes (Life-Threatening, Hospitalization, Disabling, Other)
  Sender: FDA-Public Use
  Company Number: CZ-PFIZER INC-2012044128

PATIENT
  Age: 59 Year
  Sex: Female
  Weight: 76 kg

DRUGS (6)
  1. KALIUM CHLORATUM SPOFA [Concomitant]
     Route: 048
  2. PREDNISONE TAB [Concomitant]
     Route: 048
  3. LETROX [Concomitant]
     Route: 048
  4. SOLU-MEDROL [Suspect]
     Dosage: 10 PULSES, CUMULATIVE DOSE 5G
     Route: 041
     Dates: start: 20111227, end: 20120105
  5. ESTRADIOL [Concomitant]
     Route: 048
  6. OMEPRAZOLE [Concomitant]
     Route: 048

REACTIONS (1)
  - THROMBOSIS [None]
